FAERS Safety Report 6762454-5 (Version None)
Quarter: 2010Q2

REPORT INFORMATION
  Report Type: 
  Country: None (occurrence: None)
  Receive Date: 20100609
  Receipt Date: 20100527
  Transmission Date: 20101027
  Serious: Yes (Hospitalization)
  Sender: FDA-Public Use
  Company Number: US-ELI_LILLY_AND_COMPANY-US201005007419

PATIENT
  Sex: Male
  Weight: 107 kg

DRUGS (1)
  1. ZYPREXA [Suspect]
     Indication: TOURETTE'S DISORDER
     Dosage: 10 MG, EACH EVENING

REACTIONS (9)
  - ABDOMINAL PAIN [None]
  - DEHYDRATION [None]
  - DIABETES MELLITUS [None]
  - HYPERKALAEMIA [None]
  - HYPONATRAEMIA [None]
  - OESOPHAGEAL CANDIDIASIS [None]
  - OFF LABEL USE [None]
  - ORAL CANDIDIASIS [None]
  - RENAL FAILURE ACUTE [None]
